FAERS Safety Report 8708973 (Version 4)
Quarter: 2014Q1

REPORT INFORMATION
  Report Type: Spontaneous
  Country: US (occurrence: US)
  Receive Date: 20120806
  Receipt Date: 20140204
  Transmission Date: 20141002
  Serious: Yes (Other)
  Sender: FDA-Public Use
  Company Number: US-PFIZER INC-2012187349

PATIENT
  Age: 56 Year
  Sex: Female
  Weight: 72.56 kg

DRUGS (10)
  1. LYRICA [Suspect]
     Indication: FIBROMYALGIA
     Dosage: 150 MG, 2X/DAY
     Route: 048
     Dates: start: 20110901
  2. LYRICA [Suspect]
     Dosage: 225 MG, 2X/DAY
     Route: 048
  3. MEDROXYPROGESTERONE [Concomitant]
     Indication: HOT FLUSH
     Dosage: 2.5 MG, 1X/DAY
     Route: 048
  4. ESTRADIOL [Concomitant]
     Indication: HOT FLUSH
     Dosage: 1 DF, 1X/DAY
     Route: 048
  5. HYDROXYCHLOROQUINE [Concomitant]
     Indication: AUTOIMMUNE DISORDER
     Dosage: 200 MG, 1X/DAY
  6. ADVIL [Concomitant]
     Indication: HEADACHE
     Dosage: UNK, AS NEEDED
  7. TRAZODONE [Concomitant]
     Indication: DEPRESSION
     Dosage: 150 MG, 2X/DAY
  8. TRAMADOL [Concomitant]
     Indication: PAIN
     Dosage: 100 MG, 2X/DAY
  9. LEVOTHYROXINE [Concomitant]
     Indication: HYPOTHYROIDISM
     Dosage: 150 MG, 1X/DAY
     Route: 048
  10. HYDROCHLOROTHIAZIDE/TRIAMTERENE [Concomitant]
     Indication: FIBROMYALGIA
     Dosage: 3 7.5/25MG ONCE A DAY

REACTIONS (10)
  - Fibromyalgia [Unknown]
  - Activities of daily living impaired [Not Recovered/Not Resolved]
  - Restless legs syndrome [Not Recovered/Not Resolved]
  - Hypokinesia [Not Recovered/Not Resolved]
  - Drug ineffective [Unknown]
  - Pain [Not Recovered/Not Resolved]
  - General physical condition abnormal [Not Recovered/Not Resolved]
  - Weight fluctuation [Unknown]
  - Feeling abnormal [Unknown]
  - Abnormal behaviour [Unknown]
